FAERS Safety Report 8598763-7 (Version None)
Quarter: 2012Q3

REPORT INFORMATION
  Report Type: 
  Country: None (occurrence: None)
  Receive Date: 20120816
  Receipt Date: 20120804
  Transmission Date: 20120928
  Serious: Yes (Hospitalization)
  Sender: FDA-Public Use
  Company Number: US-ELI_LILLY_AND_COMPANY-US201206008172

PATIENT
  Sex: Female
  Weight: 57.596 kg

DRUGS (11)
  1. BONIVA [Concomitant]
     Indication: SENILE OSTEOPOROSIS
     Dosage: UNK
     Dates: end: 20110101
  2. FORTEO [Suspect]
     Indication: OSTEOPOROSIS
     Dosage: 20 UG, QD
     Dates: start: 20060801, end: 20080801
  3. METAMUCIL-2 [Concomitant]
     Dosage: UNK, PRN
  4. PROMETHAZINE [Concomitant]
     Dosage: 25 MG, UNK
  5. FLUTICASONE PROPIONATE [Concomitant]
     Dosage: 100 UG, EACH EVENING
  6. CALCIUM + VITAMIN D [Concomitant]
  7. MULTI-VITAMIN [Concomitant]
  8. FEXOFENADINE [Concomitant]
     Indication: RHINITIS ALLERGIC
     Dosage: 180 MG, QD
     Route: 048
  9. IBUPROFEN [Concomitant]
     Dosage: 200 MG, PRN
  10. DIOVAN [Concomitant]
     Dosage: UNK UNK, QD
  11. TYLENOL                                 /SCH/ [Concomitant]
     Dosage: UNK, PRN

REACTIONS (14)
  - SURGERY [None]
  - UTERINE DILATION AND CURETTAGE [None]
  - TOOTH ABSCESS [None]
  - EYE LASER SURGERY [None]
  - UPPER RESPIRATORY TRACT INFECTION [None]
  - HYPOAESTHESIA [None]
  - VITAMIN D DEFICIENCY [None]
  - FALL [None]
  - UPPER LIMB FRACTURE [None]
  - BLOOD PRESSURE INCREASED [None]
  - WRIST FRACTURE [None]
  - TOOTHACHE [None]
  - ANXIETY [None]
  - PARAESTHESIA [None]
